FAERS Safety Report 15867083 (Version 1)
Quarter: 2019Q1

REPORT INFORMATION
  Report Type: Spontaneous
  Country: US (occurrence: US)
  Receive Date: 20190125
  Receipt Date: 20190125
  Transmission Date: 20190417
  Serious: Yes (Hospitalization, Other)
  Sender: FDA-Public Use
  Company Number: US-ROCHE-2245614

PATIENT
  Age: 45 Year
  Sex: Female

DRUGS (20)
  1. AIMOVIG [Suspect]
     Active Substance: ERENUMAB-AOOE
     Indication: MIGRAINE
     Route: 058
     Dates: start: 20181108, end: 20181110
  2. TIZANIDINE. [Concomitant]
     Active Substance: TIZANIDINE
     Dosage: ONGOING
     Route: 065
     Dates: start: 20171115
  3. ZOLPIDEM [Concomitant]
     Active Substance: ZOLPIDEM\ZOLPIDEM TARTRATE
  4. PARACETAMOL [Concomitant]
     Active Substance: ACETAMINOPHEN
  5. BENADRYL [Concomitant]
     Active Substance: DIPHENHYDRAMINE HYDROCHLORIDE
  6. VITAMIN D3 [Concomitant]
     Active Substance: CHOLECALCIFEROL
     Dosage: ONGOING
     Route: 065
  7. TIZANIDINE. [Concomitant]
     Active Substance: TIZANIDINE
     Dosage: ONGOING
     Route: 065
     Dates: start: 20180713
  8. MELATONIN [Concomitant]
     Active Substance: MELATONIN
     Dosage: ONGOING
     Route: 065
  9. RITALIN [Concomitant]
     Active Substance: METHYLPHENIDATE HYDROCHLORIDE
  10. OCREVUS [Suspect]
     Active Substance: OCRELIZUMAB
     Indication: MULTIPLE SCLEROSIS
     Dosage: ONGOING
     Route: 065
     Dates: start: 20170904
  11. CYANOCOBALAMIN. [Concomitant]
     Active Substance: CYANOCOBALAMIN
     Dosage: ONGOING
     Route: 065
  12. PROVIGIL [Concomitant]
     Active Substance: MODAFINIL
     Route: 065
     Dates: start: 20180821, end: 20181205
  13. MAGNESIUM GLYCINATE [Concomitant]
     Active Substance: MAGNESIUM GLYCINATE
     Dosage: ONGOING
     Route: 065
  14. BOTOX [Concomitant]
     Active Substance: ONABOTULINUMTOXINA
  15. DIAZEPAM. [Concomitant]
     Active Substance: DIAZEPAM
     Dosage: ONGOING
     Route: 065
     Dates: start: 20180227
  16. VALACYCLOVIR [Concomitant]
     Active Substance: VALACYCLOVIR HYDROCHLORIDE
     Dosage: ONGOING: UNK
     Route: 065
     Dates: start: 20171206
  17. TRINTELLIX [Concomitant]
     Active Substance: VORTIOXETINE HYDROBROMIDE
     Route: 065
     Dates: start: 20170830, end: 20181205
  18. COENZYME Q10 [Concomitant]
     Active Substance: UBIDECARENONE
     Dosage: ONGOING
     Route: 065
  19. IMITREX [Concomitant]
     Active Substance: SUMATRIPTAN SUCCINATE
     Route: 065
     Dates: start: 20170830, end: 20181205
  20. PROMETHAZINE [Concomitant]
     Active Substance: PROMETHAZINE\PROMETHAZINE HYDROCHLORIDE
     Dosage: ONGOING
     Route: 065
     Dates: start: 20171115

REACTIONS (15)
  - Ventricular tachycardia [Unknown]
  - Gingival swelling [Unknown]
  - Depression [Unknown]
  - Tachypnoea [Unknown]
  - Leukopenia [Unknown]
  - Gingival bleeding [Unknown]
  - Post lumbar puncture syndrome [Recovered/Resolved]
  - Pain [Recovering/Resolving]
  - Nausea [Unknown]
  - Drug hypersensitivity [Unknown]
  - Immunosuppression [Unknown]
  - Asthenia [Unknown]
  - Muscle spasms [Unknown]
  - Normocytic anaemia [Unknown]
  - Febrile neutropenia [Recovered/Resolved]

NARRATIVE: CASE EVENT DATE: 2018
